FAERS Safety Report 26032468 (Version 1)
Quarter: 2025Q4

REPORT INFORMATION
  Report Type: Spontaneous
  Country: MX (occurrence: MX)
  Receive Date: 20251112
  Receipt Date: 20251112
  Transmission Date: 20260117
  Serious: Yes (Death)
  Sender: IPSEN BIOPHARMACEUTICALS, INC.
  Company Number: MX-IPSEN Group, Research and Development-2025-12272

PATIENT
  Age: 70 Year
  Sex: Male

DRUGS (3)
  1. DYSPORT [Suspect]
     Active Substance: ABOBOTULINUMTOXINA
     Indication: Osteoarthritis
     Dosage: 10-20 IU IN THE ANTERIOR FEMORAL CUTANEOUS NERVE; 50-100 IU IN THE ADDUCTOR MUSCLES; 20 IU IN THE SAPHENOUS TROCHANTER AND LATERAL ILIOHYPOGASTRIC
     Route: 065
     Dates: start: 2023
  2. DYSPORT [Suspect]
     Active Substance: ABOBOTULINUMTOXINA
     Indication: Off label use
  3. ACETAMINOPHEN [Concomitant]
     Active Substance: ACETAMINOPHEN
     Indication: Product used for unknown indication

REACTIONS (2)
  - Death [Fatal]
  - Off label use [Unknown]
